FAERS Safety Report 16405176 (Version 2)
Quarter: 2020Q3

REPORT INFORMATION
  Report Type: Spontaneous
  Country: NL (occurrence: NL)
  Receive Date: 20190607
  Receipt Date: 20200722
  Transmission Date: 20201102
  Serious: Yes (Hospitalization, Other)
  Sender: FDA-Public Use
  Company Number: NL-MYLANLABS-2019M1053060

PATIENT
  Age: 56 Year
  Sex: Male

DRUGS (6)
  1. DICLOFENAC [Suspect]
     Active Substance: DICLOFENAC
     Indication: PAIN
     Dosage: 50 MILLIGRAM, Q8H (50 MG, TID)
  2. TRAMADOL. [Suspect]
     Active Substance: TRAMADOL
     Dosage: 50 MILLIGRAM, Q8H (50 MG, TID)
  3. PARACETAMOL [Suspect]
     Active Substance: ACETAMINOPHEN
     Indication: PAIN
     Dosage: 1000 MILLIGRAM, Q6H (1000 MG, QID)
  4. GABAPENTIN. [Suspect]
     Active Substance: GABAPENTIN
     Indication: PAIN
     Dosage: 600 MILLIGRAM, QD (600 MG, QD)
  5. TRAMADOL. [Suspect]
     Active Substance: TRAMADOL
     Indication: PAIN
     Dosage: 50 MILLIGRAM, Q4H (50 MG 6 TIMES DAILY)
  6. PIRITRAMIDE [Suspect]
     Active Substance: PIRITRAMIDE
     Indication: PAIN
     Dosage: 10 MILLIGRAM
     Route: 030

REACTIONS (8)
  - Nerve injury [Unknown]
  - Hypoaesthesia [Unknown]
  - Depression [Unknown]
  - Drug ineffective [Unknown]
  - Intentional product misuse [Unknown]
  - Restlessness [Unknown]
  - Agitation [Unknown]
  - Personality disorder [Unknown]
